FAERS Safety Report 14382688 (Version 2)
Quarter: 2018Q1

REPORT INFORMATION
  Report Type: Report from Study
  Country: US (occurrence: US)
  Receive Date: 20180112
  Receipt Date: 20180122
  Transmission Date: 20180509
  Serious: Yes (Other)
  Sender: FDA-Public Use
  Company Number: PHEH2018US001569

PATIENT
  Age: 57 Year
  Sex: Female

DRUGS (1)
  1. COSENTYX [Suspect]
     Active Substance: SECUKINUMAB
     Indication: ANKYLOSING SPONDYLITIS
     Dosage: 150 MG, QMO
     Route: 058

REACTIONS (13)
  - Injection site bruising [Unknown]
  - Bladder prolapse [Unknown]
  - Nausea [Unknown]
  - Vomiting [Unknown]
  - Injection site reaction [Unknown]
  - Intestinal prolapse [Unknown]
  - Headache [Unknown]
  - Dizziness [Unknown]
  - Injection site mass [Unknown]
  - Systemic lupus erythematosus [Unknown]
  - Influenza [Not Recovered/Not Resolved]
  - Pain [Unknown]
  - Pyrexia [Unknown]

NARRATIVE: CASE EVENT DATE: 20180101
